FAERS Safety Report 16780959 (Version 1)
Quarter: 2019Q3

REPORT INFORMATION
  Report Type: Report from Study
  Country: IN (occurrence: IN)
  Receive Date: 20190906
  Receipt Date: 20190906
  Transmission Date: 20191005
  Serious: Yes (Death, Other)
  Sender: FDA-Public Use
  Company Number: IN-MYLANLABS-2019M1083513

PATIENT
  Sex: Male

DRUGS (4)
  1. IFOSFAMIDE. [Suspect]
     Active Substance: IFOSFAMIDE
     Indication: OSTEOSARCOMA
     Dosage: ON DAYS 1-5 OF CYCLES 3, 4, 5, 6, 7 AND 8
     Route: 065
  2. MESNA. [Concomitant]
     Active Substance: MESNA
     Indication: OSTEOSARCOMA
     Dosage: CYCLES 3, 4 AND 5-8
     Route: 065
  3. CISPLATIN. [Suspect]
     Active Substance: CISPLATIN
     Indication: OSTEOSARCOMA
     Dosage: ON DAYS 1-3 OF CYCLES 1, 2, 5, 6, 7 AND 8
     Route: 065
  4. DOXORUBICIN [Suspect]
     Active Substance: DOXORUBICIN
     Indication: OSTEOSARCOMA
     Dosage: ON DAYS 1-3 OF CYCLES 1, 2, 3 AND 4
     Route: 065

REACTIONS (1)
  - Myelodysplastic syndrome [Fatal]
